FAERS Safety Report 4311929-7 (Version None)
Quarter: 2004Q1

REPORT INFORMATION
  Report Type: 
  Country: None (occurrence: None)
  Receive Date: 20040303
  Receipt Date: 20040223
  Transmission Date: 20041129
  Serious: Yes (Hospitalization)
  Sender: FDA-Public Use
  Company Number: 2004-01-1730

PATIENT
  Age: 51 Year
  Sex: Male

DRUGS (3)
  1. TEMODAL [Suspect]
     Indication: ASTROCYTOMA
     Dosage: 400 MG D1-D5* ORAL
     Route: 048
     Dates: start: 20031219, end: 20040215
  2. DEXAMETHASONE [Concomitant]
  3. ZOTON [Concomitant]

REACTIONS (4)
  - HEADACHE [None]
  - INCOHERENT [None]
  - NASOPHARYNGITIS [None]
  - VOMITING [None]
